FAERS Safety Report 24573151 (Version 2)
Quarter: 2024Q4

REPORT INFORMATION
  Report Type: Spontaneous
  Country: US (occurrence: CR)
  Receive Date: 20241101
  Receipt Date: 20241217
  Transmission Date: 20250115
  Serious: Yes (Other)
  Sender: PFIZER
  Company Number: US-PFIZER INC-202400291711

PATIENT
  Age: 46 Year
  Sex: Female
  Weight: 63.492 kg

DRUGS (2)
  1. IBRANCE [Suspect]
     Active Substance: PALBOCICLIB
     Indication: Breast cancer metastatic
     Dosage: 75MG TAB BY MOUTH ON ALTERNATE DAYS
     Route: 048
     Dates: start: 20150801
  2. ANASTROZOLE [Concomitant]
     Active Substance: ANASTROZOLE
     Dosage: UNK

REACTIONS (4)
  - Ligament sprain [Recovering/Resolving]
  - Tendon injury [Recovering/Resolving]
  - Impaired healing [Recovering/Resolving]
  - Off label use [Unknown]

NARRATIVE: CASE EVENT DATE: 20150801
